FAERS Safety Report 6472324-8 (Version None)
Quarter: 2009Q4

REPORT INFORMATION
  Report Type: 
  Country: None (occurrence: None)
  Receive Date: 20091203
  Receipt Date: 20090112
  Transmission Date: 20100525
  Serious: No
  Sender: FDA-Public Use
  Company Number: US-AMGEN-KDL322584

PATIENT
  Sex: Female
  Weight: 53.1 kg

DRUGS (1)
  1. ENBREL [Suspect]
     Indication: RHEUMATOID ARTHRITIS
     Route: 058
     Dates: start: 20080625

REACTIONS (9)
  - ABDOMINAL PAIN UPPER [None]
  - BRONCHITIS [None]
  - CRYING [None]
  - FEELING ABNORMAL [None]
  - INJECTION SITE PAIN [None]
  - MYALGIA [None]
  - NASAL CONGESTION [None]
  - RHINORRHOEA [None]
  - TREMOR [None]
